FAERS Safety Report 11962664 (Version 1)
Quarter: 2016Q1

REPORT INFORMATION
  Report Type: Spontaneous
  Country: US (occurrence: US)
  Receive Date: 20160126
  Receipt Date: 20160126
  Transmission Date: 20160526
  Serious: Yes (Hospitalization)
  Sender: FDA-Public Use
  Company Number: US-ABBVIE-15K-163-1382832-00

PATIENT
  Age: 40 Year
  Sex: Male

DRUGS (8)
  1. ZOLOFT [Concomitant]
     Active Substance: SERTRALINE HYDROCHLORIDE
     Indication: PRODUCT USED FOR UNKNOWN INDICATION
  2. METFORMIN [Concomitant]
     Active Substance: METFORMIN HYDROCHLORIDE
     Indication: PRODUCT USED FOR UNKNOWN INDICATION
     Dates: end: 20150413
  3. HUMIRA [Suspect]
     Active Substance: ADALIMUMAB
     Dosage: ONE WEEK AFTER THE 80 MG DOSE
     Route: 058
     Dates: start: 201503, end: 20150413
  4. CHANTIX [Concomitant]
     Active Substance: VARENICLINE TARTRATE
     Indication: PRODUCT USED FOR UNKNOWN INDICATION
  5. OXYCODONE [Concomitant]
     Active Substance: OXYCODONE
     Indication: PRODUCT USED FOR UNKNOWN INDICATION
  6. HUMIRA [Suspect]
     Active Substance: ADALIMUMAB
     Indication: PSORIASIS
     Route: 058
     Dates: start: 20150319, end: 20150319
  7. ATORVASTATIN [Concomitant]
     Active Substance: ATORVASTATIN
     Indication: PRODUCT USED FOR UNKNOWN INDICATION
  8. GLIPIZIDE. [Concomitant]
     Active Substance: GLIPIZIDE
     Indication: PRODUCT USED FOR UNKNOWN INDICATION

REACTIONS (2)
  - Bursitis infective [Recovered/Resolved]
  - Cellulitis [Recovered/Resolved]

NARRATIVE: CASE EVENT DATE: 20150413
